FAERS Safety Report 11515263 (Version 2)
Quarter: 2015Q3

REPORT INFORMATION
  Report Type: Spontaneous
  Country: IT (occurrence: IT)
  Receive Date: 20150916
  Receipt Date: 20150929
  Transmission Date: 20151125
  Serious: Yes (Other)
  Sender: FDA-Public Use
  Company Number: IT-009507513-1509ITA007661

PATIENT
  Age: 34 Year
  Sex: Male
  Weight: 86 kg

DRUGS (6)
  1. DELTACORTENE [Suspect]
     Active Substance: PREDNISONE
     Indication: INTERSTITIAL LUNG DISEASE
     Dosage: 12.5 MG, QD
     Route: 048
     Dates: start: 20140910, end: 20141121
  2. PANTOPRAZOLE [Concomitant]
     Active Substance: PANTOPRAZOLE SODIUM
  3. BACTRIM [Concomitant]
     Active Substance: SULFAMETHOXAZOLE\TRIMETHOPRIM
     Indication: INTERSTITIAL LUNG DISEASE
     Dosage: STRENGTH: 80MG + 400MG
  4. DARILIN [Concomitant]
     Indication: CYTOMEGALOVIRUS INFECTION
  5. ISENTRESS [Suspect]
     Active Substance: RALTEGRAVIR POTASSIUM
     Indication: ACQUIRED IMMUNODEFICIENCY SYNDROME
     Dosage: 800 MG, QD
     Route: 048
     Dates: start: 20140923
  6. TRUVADA [Suspect]
     Active Substance: EMTRICITABINE\TENOFOVIR DISOPROXIL FUMARATE
     Indication: ACQUIRED IMMUNODEFICIENCY SYNDROME
     Dosage: STRENGTH: 200MG/245MG, 1 DOSE UNIT, DAILY
     Route: 048
     Dates: start: 20140923

REACTIONS (1)
  - Osteonecrosis [Recovering/Resolving]

NARRATIVE: CASE EVENT DATE: 20150313
